FAERS Safety Report 9870163 (Version 2)
Quarter: 2014Q1

REPORT INFORMATION
  Report Type: Spontaneous
  Country: US (occurrence: US)
  Receive Date: 20140205
  Receipt Date: 20140313
  Transmission Date: 20141002
  Serious: No
  Sender: FDA-Public Use
  Company Number: US-009507513-1402USA001983

PATIENT
  Age: 61 Year
  Sex: Female
  Weight: 65.76 kg

DRUGS (10)
  1. OXYTROL FOR WOMEN [Suspect]
     Indication: HYPERTONIC BLADDER
     Dosage: 1 DF, Q4D
     Route: 062
     Dates: start: 20131227, end: 20140117
  2. OXYTROL FOR WOMEN [Suspect]
     Indication: MICTURITION URGENCY
  3. VALACYCLOVIR HYDROCHLORIDE [Concomitant]
     Indication: HERPES VIRUS INFECTION
     Dosage: UNK, UNKNOWN
  4. PREMARIN [Concomitant]
     Indication: HORMONE REPLACEMENT THERAPY
     Dosage: UNK, UNKNOWN
  5. CETIRIZINE HYDROCHLORIDE [Concomitant]
     Indication: HYPERSENSITIVITY
     Dosage: UNK, UNKNOWN
  6. NAPROXEN SODIUM [Concomitant]
     Indication: PAIN
     Dosage: UNK, UNKNOWN
  7. TONIC WATER [Concomitant]
     Indication: MUSCLE SPASMS
     Dosage: UNK, UNKNOWN
  8. MAGNESIUM CITRATE [Concomitant]
     Indication: MUSCLE DISORDER
     Dosage: UNK, UNKNOWN
  9. CHOLECALCIFEROL [Concomitant]
     Indication: OSTEOPOROSIS PROPHYLAXIS
     Dosage: UNK, UNKNOWN
  10. SUPER B COMPLEX [Concomitant]
     Indication: ASTHENIA
     Dosage: UNK, UNKNOWN

REACTIONS (2)
  - Nocturia [Unknown]
  - Drug ineffective [Unknown]
